FAERS Safety Report 4633923-9 (Version None)
Quarter: 2005Q2

REPORT INFORMATION
  Report Type: 
  Country: None (occurrence: None)
  Receive Date: 20050412
  Receipt Date: 20050412
  Transmission Date: 20051028
  Serious: No
  Sender: FDA-Public Use
  Company Number: None

PATIENT
  Age: 10 Year
  Sex: Male

DRUGS (2)
  1. ZOSYN [Suspect]
     Indication: INFECTION
     Dosage: 3.375MG IV
  2. PRIMAXIN [Suspect]
     Indication: INFECTION
     Dosage: 500 MG IV

REACTIONS (1)
  - RASH [None]
